FAERS Safety Report 18514469 (Version 2)
Quarter: 2020Q4

REPORT INFORMATION
  Report Type: Spontaneous
  Country: US (occurrence: US)
  Receive Date: 20201118
  Receipt Date: 20201224
  Transmission Date: 20210114
  Serious: No
  Sender: FDA-Public Use
  Company Number: US-JNJFOC-20201119161

PATIENT
  Age: 31 Year
  Sex: Female
  Weight: 121.67 kg

DRUGS (1)
  1. REMICADE [Suspect]
     Active Substance: INFLIXIMAB
     Indication: COLITIS ULCERATIVE
     Route: 042

REACTIONS (2)
  - Product dose omission issue [Unknown]
  - Dehydration [Unknown]

NARRATIVE: CASE EVENT DATE: 20201105
